FAERS Safety Report 7570581-8 (Version None)
Quarter: 2011Q2

REPORT INFORMATION
  Report Type: 
  Country: None (occurrence: None)
  Receive Date: 20110624
  Receipt Date: 20110616
  Transmission Date: 20111010
  Serious: Yes (Hospitalization)
  Sender: FDA-Public Use
  Company Number: US-SANOFI-AVENTIS-2011SA038709

PATIENT
  Age: 49 Year
  Sex: Male

DRUGS (16)
  1. DOCETAXEL [Suspect]
     Indication: HEAD AND NECK CANCER
     Route: 041
     Dates: start: 20110525, end: 20110525
  2. DIPHENHYDRAMINE HYDROCHLORIDE [Concomitant]
     Dosage: DOSE:2 TEASPOON(S)
     Route: 048
  3. HYDROCODONE BITARTRATE AND ACETAMINOPHEN [Concomitant]
     Route: 048
  4. SENNA [Concomitant]
     Indication: CONSTIPATION
     Route: 048
  5. DEXAMETHASONE [Concomitant]
     Indication: NAUSEA
     Dosage: START 12 HOUR AFTER CHEMO X 3 DAYS
  6. DEXAMETHASONE [Concomitant]
     Indication: VOMITING
     Dosage: START 12 HOUR AFTER CHEMO X 3 DAYS
  7. ONDANSETRON [Concomitant]
     Indication: VOMITING
     Dosage: START 12 HOUR AFTER CHEMO FOR 2 DAYS, THEN Q6-8H PRN
     Route: 048
  8. DILAUDID [Concomitant]
     Indication: PAIN
     Route: 048
  9. ONDANSETRON [Concomitant]
     Indication: NAUSEA
     Dosage: START 12 HOUR AFTER CHEMO FOR 2 DAYS, THEN Q6-8H PRN
     Route: 048
  10. NEURONTIN [Concomitant]
     Route: 048
  11. PROCHLORPERAZINE TAB [Concomitant]
     Indication: NAUSEA
     Route: 048
  12. PROCHLORPERAZINE TAB [Concomitant]
     Indication: VOMITING
     Route: 048
  13. CISPLATIN [Suspect]
     Indication: HEAD AND NECK CANCER
     Dates: start: 20110525, end: 20110525
  14. ERLOTINIB HYDROCHLORIDE [Suspect]
     Indication: HEAD AND NECK CANCER
     Route: 048
     Dates: start: 20110412, end: 20110502
  15. ERLOTINIB HYDROCHLORIDE [Suspect]
     Route: 048
     Dates: start: 20110503, end: 20110525
  16. HYCODAN /CAN/ [Concomitant]
     Indication: COUGH
     Route: 048

REACTIONS (10)
  - HYPOCALCAEMIA [None]
  - ANAEMIA [None]
  - HYPONATRAEMIA [None]
  - DEHYDRATION [None]
  - DIARRHOEA [None]
  - VOMITING [None]
  - HYPOMAGNESAEMIA [None]
  - NAUSEA [None]
  - HYPOALBUMINAEMIA [None]
  - HYPOKALAEMIA [None]
